FAERS Safety Report 16920601 (Version 1)
Quarter: 2019Q4

REPORT INFORMATION
  Report Type: Spontaneous
  Country: US (occurrence: US)
  Receive Date: 20190823
  Receipt Date: 20190823
  Transmission Date: 20200122
  Serious: No
  Sender: FDA-Public Use
  Company Number: None

PATIENT
  Age: 48 Year
  Sex: Female

DRUGS (3)
  1. BACTRIM [Concomitant]
     Active Substance: SULFAMETHOXAZOLE\TRIMETHOPRIM
  2. LINEZDID [Concomitant]
  3. AMIKACIN SULFATE 1 GM/4ML [Suspect]
     Active Substance: AMIKACIN SULFATE
     Indication: MYCOBACTERIUM FORTUITUM INFECTION
     Dosage: ?          OTHER ROUTE:IV?
     Dates: start: 20190611

REACTIONS (8)
  - Platelet count decreased [None]
  - Red blood cell count decreased [None]
  - Haemoglobin decreased [None]
  - Tinnitus [None]
  - White blood cell count decreased [None]
  - Aspartate aminotransferase increased [None]
  - Alanine aminotransferase increased [None]
  - Haematocrit decreased [None]

NARRATIVE: CASE EVENT DATE: 20190822
